FAERS Safety Report 18237792 (Version 1)
Quarter: 2020Q3

REPORT INFORMATION
  Report Type: Spontaneous
  Country: FR (occurrence: FR)
  Receive Date: 20200907
  Receipt Date: 20200907
  Transmission Date: 20201104
  Serious: Yes (Hospitalization)
  Sender: FDA-Public Use
  Company Number: FR-ROCHE-2672165

PATIENT
  Age: 84 Year
  Sex: Male
  Weight: 80 kg

DRUGS (3)
  1. RITUXIMAB. [Suspect]
     Active Substance: RITUXIMAB
     Indication: B-CELL LYMPHOMA
     Route: 041
     Dates: start: 20200221, end: 20200415
  2. POLATUZUMAB VEDOTIN. [Suspect]
     Active Substance: POLATUZUMAB VEDOTIN
     Indication: B-CELL LYMPHOMA
     Route: 041
     Dates: start: 20200221, end: 20200415
  3. BENDAMUSTINE HYDROCHLORIDE. [Suspect]
     Active Substance: BENDAMUSTINE HYDROCHLORIDE
     Indication: B-CELL LYMPHOMA
     Dosage: LAST DOSE RECEIVED ON 15/APR/2020
     Route: 041
     Dates: start: 20200221

REACTIONS (3)
  - Diarrhoea [Unknown]
  - Weight decreased [Unknown]
  - General physical health deterioration [Unknown]
